FAERS Safety Report 5003273-X (Version None)
Quarter: 2006Q2

REPORT INFORMATION
  Report Type: 
  Country: None (occurrence: None)
  Receive Date: 20060508
  Receipt Date: 20060424
  Transmission Date: 20061013
  Serious: Yes (Other)
  Sender: FDA-Public Use
  Company Number: HQWYE755410FEB06

PATIENT
  Age: 5 Year
  Sex: Male

DRUGS (1)
  1. BENEFIX [Suspect]
     Indication: HAEMOPHILIA
     Dosage: 500 OR 1000 IU ON DEMAND FOR A TOTAL OF 7 EXPOSURE DAYS
     Dates: start: 20040425, end: 20060208

REACTIONS (2)
  - DRUG INEFFECTIVE [None]
  - FACTOR IX INHIBITION [None]
